FAERS Safety Report 7581229-0 (Version None)
Quarter: 2011Q2

REPORT INFORMATION
  Report Type: 
  Country: None (occurrence: None)
  Receive Date: 20110629
  Receipt Date: 20110624
  Transmission Date: 20111010
  Serious: Yes (Life-Threatening)
  Sender: FDA-Public Use
  Company Number: PHHY2011GB56152

PATIENT
  Age: 58 Year
  Sex: Male

DRUGS (5)
  1. ASPIRIN [Concomitant]
     Dosage: UNK UKN, UNK
  2. DIPYRIDAMOLE [Concomitant]
     Dosage: UNK UKN, UNK
  3. TIZANIDINE HCL [Suspect]
     Indication: MUSCLE SPASTICITY
     Dosage: 2 MG, Q6H
     Dates: start: 20070101
  4. CITALOPRAM HYDROBROMIDE [Suspect]
     Indication: DEPRESSION
     Dosage: 20MG
     Route: 048
     Dates: start: 20110228, end: 20110228
  5. TRIMETHOPRIM [Concomitant]
     Dosage: UNK UKN, UNK

REACTIONS (2)
  - HYPOTENSION [None]
  - DRUG INTERACTION [None]
